FAERS Safety Report 5987181-3 (Version None)
Quarter: 2008Q4

REPORT INFORMATION
  Report Type: 
  Country: None (occurrence: None)
  Receive Date: 20081203
  Receipt Date: 20081119
  Transmission Date: 20090506
  Serious: Yes (Life-Threatening, Hospitalization)
  Sender: FDA-Public Use
  Company Number: RENA-12054

PATIENT
  Age: 55 Year
  Sex: Female
  Weight: 46.9 kg

DRUGS (18)
  1. RENAGEL [Suspect]
     Indication: HYPERPHOSPHATAEMIA
     Dosage: 1 G TID ORAL; 0.5 G TID ORAL; 0.75 G TID ORAL; 1 G TID ORAL
     Route: 048
     Dates: start: 20041021, end: 20041201
  2. RENAGEL [Suspect]
     Indication: HYPERPHOSPHATAEMIA
     Dosage: 1 G TID ORAL; 0.5 G TID ORAL; 0.75 G TID ORAL; 1 G TID ORAL
     Route: 048
     Dates: start: 20050729, end: 20050801
  3. RENAGEL [Suspect]
     Indication: HYPERPHOSPHATAEMIA
     Dosage: 1 G TID ORAL; 0.5 G TID ORAL; 0.75 G TID ORAL; 1 G TID ORAL
     Route: 048
     Dates: start: 20060516, end: 20060611
  4. RENAGEL [Suspect]
     Indication: HYPERPHOSPHATAEMIA
     Dosage: 1 G TID ORAL; 0.5 G TID ORAL; 0.75 G TID ORAL; 1 G TID ORAL
     Route: 048
     Dates: start: 20060612, end: 20061203
  5. MINIPRESS (PRAZOSIN HYDROCHLORIDE) TABLET [Concomitant]
  6. ULGUT (BENEXATE HYDROCHLORIDE) CAPSULE [Concomitant]
  7. ALTAT (ROXATIDINE ACETATE HYDROCHLORIDE) CAPSULE [Concomitant]
  8. AMLODIPINE BESYLATE [Concomitant]
  9. TANKARU (CALCIUM CARBONATE) [Concomitant]
  10. KALIMATE (CALCIUM POLYSTYRENE SULFONATE) [Concomitant]
  11. SALOBEL (ALLOPURINOL) TABLET [Concomitant]
  12. RISUMIC (AMEZINIUM METILSULFATE) TABLET [Concomitant]
  13. HERCEPTIN [Concomitant]
  14. TAXOL [Concomitant]
  15. NAVELBINE [Concomitant]
  16. ISOSORBIDE DINITRATE [Concomitant]
  17. RED CELLS MAP (RED BLOOD CELLS, CONCENTRATED) INJECTION [Concomitant]
  18. YODEL (SENNA ALEXANDRINA) TABLET [Concomitant]

REACTIONS (4)
  - BLOOD UREA INCREASED [None]
  - BREAST CANCER RECURRENT [None]
  - CONSTIPATION [None]
  - LARGE INTESTINE PERFORATION [None]
